FAERS Safety Report 21289530 (Version 1)
Quarter: 2022Q3

REPORT INFORMATION
  Report Type: Report from Study
  Country: GB (occurrence: GB)
  Receive Date: 20220902
  Receipt Date: 20220902
  Transmission Date: 20221027
  Serious: Yes (Other)
  Sender: FDA-Public Use
  Company Number: GB-TEVA-2022-GB-2026391

PATIENT
  Age: 25 Year
  Sex: Female

DRUGS (1)
  1. AJOVY [Suspect]
     Active Substance: FREMANEZUMAB-VFRM
     Indication: Product used for unknown indication
     Route: 065

REACTIONS (8)
  - Throat tightness [Unknown]
  - Injection site pain [Unknown]
  - Injection site induration [Unknown]
  - Injection site pruritus [Unknown]
  - Tattoo [Unknown]
  - Impaired healing [Unknown]
  - Dermatitis [Unknown]
  - Pruritus [Unknown]

NARRATIVE: CASE EVENT DATE: 20220301
